FAERS Safety Report 12717132 (Version 3)
Quarter: 2016Q3

REPORT INFORMATION
  Report Type: Spontaneous
  Country: US (occurrence: US)
  Receive Date: 20160906
  Receipt Date: 20160906
  Transmission Date: 20161109
  Serious: Yes (Other)
  Sender: FDA-Public Use
  Company Number: US-BAYER-2016-170054

PATIENT
  Sex: Female

DRUGS (3)
  1. MIRENA [Suspect]
     Active Substance: LEVONORGESTREL
     Indication: ENDOMETRIOSIS
     Dosage: 20 MCG/24HR, CONT
     Route: 015
     Dates: start: 2016
  2. ALEVE [Suspect]
     Active Substance: NAPROXEN SODIUM
     Dosage: UNK
     Route: 048
     Dates: start: 2016
  3. ADVIL [Suspect]
     Active Substance: IBUPROFEN
     Dosage: UNK
     Route: 048
     Dates: start: 2016

REACTIONS (9)
  - Condition aggravated [None]
  - Menorrhagia [None]
  - Dysmenorrhoea [None]
  - Hyperhidrosis [None]
  - Procedural pain [None]
  - Off label use of device [None]
  - Abdominal pain lower [None]
  - Post procedural haemorrhage [Recovered/Resolved]
  - Malaise [None]

NARRATIVE: CASE EVENT DATE: 2016
